FAERS Safety Report 16854055 (Version 1)
Quarter: 2019Q3

REPORT INFORMATION
  Report Type: Spontaneous
  Country: US (occurrence: US)
  Receive Date: 20190926
  Receipt Date: 20190926
  Transmission Date: 20191005
  Serious: Yes (Other)
  Sender: FDA-Public Use
  Company Number: US-DRREDDYS-USA/USA/19/0114557

PATIENT
  Age: 54 Year
  Sex: Male

DRUGS (3)
  1. PANTOPRAZOLE SODIUM DR TABLETS 20MG AND 40MG [Suspect]
     Active Substance: PANTOPRAZOLE SODIUM
     Indication: PRODUCT USED FOR UNKNOWN INDICATION
  2. FLUCONAZOLE. [Suspect]
     Active Substance: FLUCONAZOLE
     Indication: COCCIDIOIDOMYCOSIS
  3. POSACONAZOLE [Interacting]
     Active Substance: POSACONAZOLE
     Indication: COCCIDIOIDOMYCOSIS

REACTIONS (7)
  - Hypokalaemia [Recovered/Resolved]
  - Acquired apparent mineralocorticoid excess [Recovered/Resolved]
  - Nausea [Unknown]
  - Hypertension [Recovered/Resolved]
  - Cheilitis [Unknown]
  - Drug interaction [Recovered/Resolved]
  - Xerosis [Unknown]
